FAERS Safety Report 18461867 (Version 1)
Quarter: 2020Q4

REPORT INFORMATION
  Report Type: Other
  Country: FR (occurrence: FR)
  Receive Date: 20201104
  Receipt Date: 20201104
  Transmission Date: 20210114
  Serious: Yes (Hospitalization, Other)
  Sender: FDA-Public Use
  Company Number: FR-APOTEX-2020AP020892

PATIENT
  Age: 49 Year
  Sex: Male

DRUGS (3)
  1. VALIUM [Suspect]
     Active Substance: DIAZEPAM
     Indication: PRODUCT USED FOR UNKNOWN INDICATION
     Dosage: 250 MILLIGRAM, SINGLE
     Route: 048
     Dates: start: 20200208
  2. PAROXETINE HYDROCHLORIDE. [Suspect]
     Active Substance: PAROXETINE HYDROCHLORIDE
     Indication: PRODUCT USED FOR UNKNOWN INDICATION
     Dosage: 280 MILLIGRAM, SINGLE
     Route: 048
     Dates: start: 20200208
  3. CYAMEMAZINE [Suspect]
     Active Substance: CYAMEMAZINE
     Indication: PRODUCT USED FOR UNKNOWN INDICATION
     Dosage: 355 MILLIGRAM, SINGLE
     Route: 048
     Dates: start: 20200208

REACTIONS (3)
  - Altered state of consciousness [Recovered/Resolved]
  - Somnolence [Recovered/Resolved]
  - Poisoning deliberate [Recovered/Resolved]

NARRATIVE: CASE EVENT DATE: 20200208
